FAERS Safety Report 8137566-4 (Version None)
Quarter: 2012Q1

REPORT INFORMATION
  Report Type: 
  Country: None (occurrence: None)
  Receive Date: 20120215
  Receipt Date: 20120210
  Transmission Date: 20120608
  Serious: No
  Sender: FDA-Public Use
  Company Number: US-PFIZER INC-2012036922

PATIENT
  Sex: Male

DRUGS (7)
  1. LORTAB [Concomitant]
     Dosage: 5 (UNITS NOT PROVIDED)
  2. AMLODIPINE [Concomitant]
     Dosage: 5 MG, UNK
  3. POTASSIUM [Concomitant]
     Dosage: 75 MG, UNK
  4. SYNTHROID [Concomitant]
     Dosage: 100 UG, UNK
  5. PRILOSEC [Concomitant]
     Dosage: 40 MG, UNK
  6. LORAZEPAM [Concomitant]
     Dosage: 1 MG, UNK
  7. SUTENT [Suspect]
     Dosage: 50 MG, 1X/DAY
     Route: 048

REACTIONS (7)
  - NAUSEA [None]
  - PAIN [None]
  - FATIGUE [None]
  - RASH [None]
  - STOMATITIS [None]
  - HAIR COLOUR CHANGES [None]
  - DYSPEPSIA [None]
